FAERS Safety Report 25321784 (Version 1)
Quarter: 2025Q2

REPORT INFORMATION
  Report Type: Spontaneous
  Country: US (occurrence: US)
  Receive Date: 20250516
  Receipt Date: 20250516
  Transmission Date: 20250716
  Serious: No
  Sender: GLAXOSMITHKLINE
  Company Number: US-GSK-US2025AMR057234

PATIENT
  Sex: Female
  Weight: 77.007 kg

DRUGS (1)
  1. NUCALA [Suspect]
     Active Substance: MEPOLIZUMAB
     Indication: Asthma
     Dates: start: 20220202

REACTIONS (4)
  - Eye pruritus [Unknown]
  - Sneezing [Unknown]
  - Hypersensitivity [Unknown]
  - Nasal pruritus [Unknown]
